FAERS Safety Report 15661869 (Version 1)
Quarter: 2018Q4

REPORT INFORMATION
  Report Type: Spontaneous
  Country: US (occurrence: US)
  Receive Date: 20181127
  Receipt Date: 20181127
  Transmission Date: 20190205
  Serious: Yes (Hospitalization, Other)
  Sender: FDA-Public Use
  Company Number: US-INDIVIOR LIMITED-INDV-115864-2018

PATIENT
  Sex: Male

DRUGS (1)
  1. SUBLOCADE [Suspect]
     Active Substance: BUPRENORPHINE
     Indication: DRUG USE DISORDER
     Dosage: 300 MG, QMO
     Route: 065
     Dates: start: 2018, end: 20180923

REACTIONS (4)
  - Hospitalisation [Unknown]
  - Drug withdrawal syndrome [Recovered/Resolved]
  - Heart rate decreased [Not Recovered/Not Resolved]
  - Drug screen positive [Recovered/Resolved]

NARRATIVE: CASE EVENT DATE: 2018
